FAERS Safety Report 24786586 (Version 1)
Quarter: 2024Q4

REPORT INFORMATION
  Report Type: Other
  Country: JP (occurrence: JP)
  Receive Date: 20241230
  Receipt Date: 20241230
  Transmission Date: 20250115
  Serious: Yes (Death)
  Sender: ANI
  Company Number: JP-ANIPHARMA-015229

PATIENT
  Age: 32 Year
  Sex: Female

DRUGS (4)
  1. LEUCOVORIN CALCIUM [Suspect]
     Active Substance: LEUCOVORIN CALCIUM
     Indication: Gastrointestinal carcinoma
     Dosage: 7 CYCLES
  2. FLUOROURACIL [Concomitant]
     Active Substance: FLUOROURACIL
     Indication: Gastrointestinal carcinoma
     Dosage: 7 CYCLES
  3. OXALIPLATIN [Concomitant]
     Active Substance: OXALIPLATIN
     Indication: Gastrointestinal carcinoma
     Dosage: 7 CYCLES
  4. IRINOTECAN [Concomitant]
     Active Substance: IRINOTECAN
     Indication: Gastrointestinal carcinoma

REACTIONS (1)
  - Therapy non-responder [Fatal]
